FAERS Safety Report 8519415 (Version 2)
Quarter: 2013Q1

REPORT INFORMATION
  Report Type: Report from Study
  Country: DE (occurrence: DE)
  Receive Date: 20120418
  Receipt Date: 20130225
  Transmission Date: 20140127
  Serious: Yes (Death, Life-Threatening, Hospitalization)
  Sender: FDA-Public Use
  Company Number: DE-ACTELION-A-US2012-64219

PATIENT
  Age: 59 Year
  Sex: Male

DRUGS (1)
  1. VENTAVIS [Suspect]
     Indication: PULMONARY ARTERIAL HYPERTENSION
     Dosage: 2.5 UG, TID
     Route: 055
     Dates: start: 20111121, end: 20120402

REACTIONS (3)
  - Death [Fatal]
  - Cardioversion [Recovered/Resolved]
  - Nausea [Not Recovered/Not Resolved]
